FAERS Safety Report 10786366 (Version 1)
Quarter: 2015Q1

REPORT INFORMATION
  Report Type: Spontaneous
  Country: US (occurrence: None)
  Receive Date: 20150210
  Receipt Date: 20150210
  Transmission Date: 20150721
  Serious: No
  Sender: FDA-Public Use
  Company Number: None

PATIENT
  Age: 56 Year
  Sex: Female
  Weight: 79.38 kg

DRUGS (1)
  1. FLONASE [Suspect]
     Active Substance: FLUTICASONE PROPIONATE
     Indication: MULTIPLE ALLERGIES
     Dosage: 1 SPRAY ONCE DAILY INHALATION
     Route: 055
     Dates: start: 20150208, end: 20150208

REACTIONS (4)
  - Product container seal issue [None]
  - Product quality issue [None]
  - Product packaging quantity issue [None]
  - Product tampering [None]

NARRATIVE: CASE EVENT DATE: 20150208
